FAERS Safety Report 7123767-0 (Version None)
Quarter: 2010Q4

REPORT INFORMATION
  Report Type: 
  Country: None (occurrence: None)
  Receive Date: 20101125
  Receipt Date: 20101115
  Transmission Date: 20110411
  Serious: Yes (Other)
  Sender: FDA-Public Use
  Company Number: PHHY2010US74365

PATIENT
  Sex: Female

DRUGS (28)
  1. RECLAST [Suspect]
     Indication: OSTEOPOROSIS
     Dosage: UNK
     Dates: start: 20101019
  2. HYDROCODONE [Concomitant]
     Dosage: 7.5/500
  3. TIZANIDINE HCL [Concomitant]
     Dosage: 4 MG EVERY 3 HOURS
  4. PREDNISONE [Concomitant]
     Dosage: 5 MG IN THE MORNING AND 2 MG IN THE EVENING
  5. ORENCIA [Concomitant]
     Dosage: 750 MG EVERY MONTH
  6. DENLAFAXINE [Concomitant]
  7. LUNESTA [Concomitant]
  8. SYNTHROID [Concomitant]
     Dosage: 0.175 MG, QD
  9. ABILIFY [Concomitant]
  10. VYTORIN [Concomitant]
     Dosage: 10/40 DAILY
  11. METOPROLOL SUCCINATE [Concomitant]
  12. TRICOR [Concomitant]
     Dosage: 145 MG, QD
  13. FISH OIL [Concomitant]
     Dosage: UNK
  14. POTASSIUM CHLORIDE [Concomitant]
  15. MULTI-VITAMIN [Concomitant]
     Dosage: DAILY
  16. CALCIUM [Concomitant]
  17. VITAMIN D3 [Concomitant]
  18. POTASSIUM GLUCONATE TAB [Concomitant]
     Dosage: 5 MG, QD
  19. TOPROL-XL [Concomitant]
     Dosage: 100 MG, QD
  20. PREVACID [Concomitant]
     Dosage: 30 MG, BID
  21. NITROGLYCERIN [Concomitant]
     Dosage: 0.4 MG, PRN
  22. CALCIUM CITRATE [Concomitant]
     Dosage: 2 TABLETS FOUR TIMES DAILY
  23. DARVOCET-N 100 [Concomitant]
     Dosage: 100, FOUR PER DAY
  24. EFFEXOR [Concomitant]
     Dosage: 150 MG, QD
  25. METHOTREXATE [Concomitant]
     Dosage: 20 MG EVERY WEDNESDAY
  26. PROVIGIL [Concomitant]
     Dosage: UNK
  27. VITAMIN D [Concomitant]
     Dosage: 1000 MG, TID
  28. ALBUTEROL [Concomitant]
     Dosage: UNK

REACTIONS (18)
  - ARTHRALGIA [None]
  - BLOOD CREATINE ABNORMAL [None]
  - CHILLS [None]
  - DIZZINESS [None]
  - EAR INFECTION [None]
  - FEELING COLD [None]
  - LIGAMENT RUPTURE [None]
  - LIMB DISCOMFORT [None]
  - LIVER FUNCTION TEST ABNORMAL [None]
  - MOBILITY DECREASED [None]
  - MUSCLE RUPTURE [None]
  - MUSCLE SPASMS [None]
  - MUSCLE STRAIN [None]
  - NAUSEA [None]
  - OEDEMA PERIPHERAL [None]
  - PAIN IN EXTREMITY [None]
  - PYREXIA [None]
  - URTICARIA [None]
